FAERS Safety Report 8893671 (Version 3)
Quarter: 2012Q4

REPORT INFORMATION
  Report Type: 
  Country: FR (occurrence: FR)
  Receive Date: 20121108
  Receipt Date: 20121123
  Transmission Date: 20130627
  Serious: Yes (Other)
  Sender: FDA-Public Use
  Company Number: FR-JNJFOC-20121101769

PATIENT
  Sex: Female

DRUGS (3)
  1. EPITOMAX [Suspect]
     Indication: DEPRESSION
     Dosage: initiated since 6 years
     Route: 048
  2. LAROXYL [Concomitant]
     Indication: PRODUCT USED FOR UNKNOWN INDICATION
     Route: 065
  3. EFFEXOR [Concomitant]
     Indication: PRODUCT USED FOR UNKNOWN INDICATION
     Route: 065

REACTIONS (6)
  - Amnesia [Unknown]
  - Formication [Unknown]
  - Sensory loss [Unknown]
  - Asthenia [Unknown]
  - Asthenia [Unknown]
  - Off label use [Unknown]
